FAERS Safety Report 5215632-0 (Version None)
Quarter: 2007Q1

REPORT INFORMATION
  Report Type: 
  Country: None (occurrence: None)
  Receive Date: 20070123
  Receipt Date: 20070116
  Transmission Date: 20070707
  Serious: Yes (Death, Hospitalization, Other)
  Sender: FDA-Public Use
  Company Number: PHBS2007GB01075

PATIENT
  Age: 63 Year
  Sex: Male

DRUGS (8)
  1. CAMPATH [Suspect]
     Indication: STEM CELL TRANSPLANT
     Route: 065
  2. FLUDARABINE [Concomitant]
     Indication: STEM CELL TRANSPLANT
     Route: 065
  3. CYTARABINE [Concomitant]
     Indication: STEM CELL TRANSPLANT
     Route: 065
  4. NEUPOGEN [Concomitant]
  5. IDARUBICIN HCL [Concomitant]
     Indication: STEM CELL TRANSPLANT
     Route: 065
  6. BUSULPHAN [Concomitant]
     Indication: STEM CELL TRANSPLANT
     Route: 065
  7. SULFAMETHOXAZOLE AND TRIMETHOPRIM [Concomitant]
  8. CYCLOSPORINE [Suspect]
     Indication: STEM CELL TRANSPLANT

REACTIONS (7)
  - ACUTE GRAFT VERSUS HOST DISEASE IN SKIN [None]
  - BRAIN OEDEMA [None]
  - CEREBRAL TOXOPLASMOSIS [None]
  - COMPLICATIONS OF TRANSPLANT SURGERY [None]
  - CONVULSION [None]
  - HEMIPARESIS [None]
  - LEUKAEMIA RECURRENT [None]
